FAERS Safety Report 24046336 (Version 2)
Quarter: 2024Q3

REPORT INFORMATION
  Report Type: Spontaneous
  Country: FR (occurrence: FR)
  Receive Date: 20240703
  Receipt Date: 20240927
  Transmission Date: 20241016
  Serious: Yes (Other)
  Sender: TEVA
  Company Number: FR-TEVA-VS-3214352

PATIENT
  Age: 44 Year
  Sex: Female

DRUGS (18)
  1. COPAXONE [Suspect]
     Active Substance: GLATIRAMER ACETATE
     Indication: Multiple sclerosis
     Dosage: DOSAGE: 40 MG/ML
     Route: 058
     Dates: start: 2019
  2. DERINOX [Concomitant]
     Indication: Product used for unknown indication
     Route: 065
     Dates: start: 20230915
  3. DERINOX [Concomitant]
     Indication: Product used for unknown indication
     Route: 065
     Dates: start: 20231102
  4. PRISTINAMYCIN [Concomitant]
     Active Substance: PRISTINAMYCIN
     Indication: Product used for unknown indication
     Route: 065
     Dates: start: 20231003
  5. OFLOXACIN [Concomitant]
     Active Substance: OFLOXACIN
     Indication: Product used for unknown indication
     Dosage: FOR 7 DAYS
     Route: 065
     Dates: start: 20231003
  6. AUGMENTIN [Concomitant]
     Active Substance: AMOXICILLIN\CLAVULANATE POTASSIUM
     Indication: Product used for unknown indication
     Route: 065
     Dates: start: 20231005
  7. CEFPODOXIME [Concomitant]
     Active Substance: CEFPODOXIME
     Indication: Product used for unknown indication
     Route: 065
     Dates: start: 20231031
  8. PREDNISOLONE [Concomitant]
     Active Substance: PREDNISOLONE
     Indication: Product used for unknown indication
     Route: 065
     Dates: start: 20231102
  9. PREDNISOLONE [Concomitant]
     Active Substance: PREDNISOLONE
     Indication: Product used for unknown indication
     Route: 065
     Dates: start: 20240621
  10. CIPROFLOXACIN HYDROCHLORIDE\DEXAMETHASONE [Concomitant]
     Active Substance: CIPROFLOXACIN HYDROCHLORIDE\DEXAMETHASONE
     Indication: Product used for unknown indication
     Dosage: FOR 10 DAYS
     Route: 065
     Dates: start: 20230825
  11. CIPROFLOXACIN HYDROCHLORIDE\DEXAMETHASONE [Concomitant]
     Active Substance: CIPROFLOXACIN HYDROCHLORIDE\DEXAMETHASONE
     Indication: Product used for unknown indication
     Dosage: FOR 10 DAYS
     Route: 065
     Dates: start: 20240921
  12. BECLOMETHASONE DIPROPIONATE [Concomitant]
     Active Substance: BECLOMETHASONE DIPROPIONATE
     Indication: Product used for unknown indication
     Dosage: FOR 10 DAYS
     Route: 065
     Dates: start: 20230825
  13. AZITHROMYCIN [Concomitant]
     Active Substance: AZITHROMYCIN
     Indication: Product used for unknown indication
     Route: 065
     Dates: start: 20240114
  14. TIXOCORTOL PIVALATE [Concomitant]
     Active Substance: TIXOCORTOL PIVALATE
     Indication: Product used for unknown indication
     Route: 065
     Dates: start: 20240114
  15. DESLORATADINE [Concomitant]
     Active Substance: DESLORATADINE
     Indication: Product used for unknown indication
     Route: 065
     Dates: start: 20240621
  16. AMOXICILLIN [Concomitant]
     Active Substance: AMOXICILLIN
     Indication: Product used for unknown indication
     Dosage: 7 DAYS
     Route: 065
     Dates: start: 20240621
  17. AMOXICILLIN [Concomitant]
     Active Substance: AMOXICILLIN
     Indication: Product used for unknown indication
     Dosage: FOR 5 DAYS
     Route: 065
     Dates: start: 20230921
  18. ciprofloxacin-dexamethasone [Concomitant]
     Indication: Product used for unknown indication
     Route: 065
     Dates: start: 20231214

REACTIONS (7)
  - Tympanic membrane perforation [Not Recovered/Not Resolved]
  - Infection [Recovered/Resolved]
  - Ear infection [Recovered/Resolved]
  - Vertigo [Recovered/Resolved]
  - Immune system disorder [Not Recovered/Not Resolved]
  - Impaired healing [Not Recovered/Not Resolved]
  - Ear pain [Unknown]

NARRATIVE: CASE EVENT DATE: 20230801
